FAERS Safety Report 4561746-8 (Version None)
Quarter: 2005Q1

REPORT INFORMATION
  Report Type: 
  Country: None (occurrence: None)
  Receive Date: 20050126
  Receipt Date: 20050118
  Transmission Date: 20050727
  Serious: Yes (Death, Hospitalization)
  Sender: FDA-Public Use
  Company Number: US-ABBOTT-05P-163-0287213-00

PATIENT
  Age: 79 Year
  Sex: Female

DRUGS (1)
  1. SYNTHROID [Suspect]
     Indication: HYPOTHYROIDISM
     Route: 048

REACTIONS (7)
  - CARDIO-RESPIRATORY ARREST [None]
  - DEHYDRATION [None]
  - FALL [None]
  - HYPERTHYROIDISM [None]
  - MEDICATION ERROR [None]
  - MYOCARDIAL INFARCTION [None]
  - OVERDOSE [None]
